FAERS Safety Report 11179454 (Version 2)
Quarter: 2015Q2

REPORT INFORMATION
  Report Type: Report from Study
  Country: BE (occurrence: BE)
  Receive Date: 20150611
  Receipt Date: 20150616
  Transmission Date: 20150821
  Serious: Yes (Other)
  Sender: FDA-Public Use
  Company Number: PHHY2015BE069473

PATIENT
  Sex: Female

DRUGS (4)
  1. CGP 57148B [Suspect]
     Active Substance: IMATINIB MESYLATE
     Dosage: 100 MG, QD
     Route: 048
  2. CGP 57148B [Suspect]
     Active Substance: IMATINIB MESYLATE
     Indication: MASTOCYTOSIS
     Dosage: 400 MG, QD
     Route: 048
     Dates: start: 20100924
  3. PROLIA [Concomitant]
     Active Substance: DENOSUMAB
     Indication: PRODUCT USED FOR UNKNOWN INDICATION
     Route: 065
  4. PANTOMED//PANTOPRAZOLE SODIUM SESQUIHYDRATE [Concomitant]
     Indication: PRODUCT USED FOR UNKNOWN INDICATION
     Route: 065

REACTIONS (1)
  - Retinal detachment [Unknown]

NARRATIVE: CASE EVENT DATE: 2011
